FAERS Safety Report 18666237 (Version 2)
Quarter: 2021Q1

REPORT INFORMATION
  Report Type: Report from Study
  Country: AU (occurrence: AU)
  Receive Date: 20201226
  Receipt Date: 20210116
  Transmission Date: 20210419
  Serious: Yes (Other)
  Sender: FDA-Public Use
  Company Number: NVSC2020AU333248

PATIENT
  Age: 66 Year
  Sex: Male
  Weight: 84.4 kg

DRUGS (12)
  1. VORICONAZOLE. [Suspect]
     Active Substance: VORICONAZOLE
     Dosage: 1 DF, QD (200 MG)
     Route: 040
     Dates: start: 20191226, end: 20191226
  2. CYTARABINE. [Suspect]
     Active Substance: CYTARABINE
     Dosage: 2.010 MG, BID (OVER 3 HOURS, TWICE DAILY ON DAYS 1, 3, 5, CONSOLIDATION WITH SINGLE?AGENT CYTARABINE
     Route: 042
     Dates: start: 20191010, end: 20191015
  3. METHOTREXATE. [Suspect]
     Active Substance: METHOTREXATE
     Dosage: 1 DF, QD (10 MG/M2)
     Route: 040
     Dates: start: 20191218, end: 20191218
  4. CYCLOSPORINE. [Suspect]
     Active Substance: CYCLOSPORINE
     Indication: PROPHYLAXIS AGAINST GRAFT VERSUS HOST DISEASE
     Dosage: 2 DF, QD (140 MG)
     Route: 040
     Dates: start: 20191219, end: 20191225
  5. METHOTREXATE. [Suspect]
     Active Substance: METHOTREXATE
     Dosage: 1 DF, QD (10 MG/M2)
     Route: 040
     Dates: start: 20191215, end: 20191215
  6. METHOTREXATE. [Suspect]
     Active Substance: METHOTREXATE
     Dosage: 1 DF, QD (10 MG/M2)
     Route: 040
     Dates: start: 20191223, end: 20191223
  7. CYCLOSPORINE. [Suspect]
     Active Substance: CYCLOSPORINE
     Dosage: 1 DF, QD (140 MG)
     Route: 040
     Dates: start: 20191226, end: 20191226
  8. CYTARABINE. [Suspect]
     Active Substance: CYTARABINE
     Indication: ACUTE MYELOID LEUKAEMIA
     Dosage: 201 MG, QD (BY CONTINUOUS INFUSION, INDUCTION)
     Route: 041
     Dates: start: 20190904, end: 20190911
  9. DAUNORUBICIN HCL [Suspect]
     Active Substance: DAUNORUBICIN HYDROCHLORIDE
     Indication: ACUTE MYELOID LEUKAEMIA
     Dosage: 121 MG, QD (BY CONTINUOS INFUSION, INDUCTION)
     Route: 041
     Dates: start: 20190904, end: 20190906
  10. METHOTREXATE. [Suspect]
     Active Substance: METHOTREXATE
     Indication: PROPHYLAXIS AGAINST GRAFT VERSUS HOST DISEASE
     Dosage: 1 DF, QD (15 MG/M2)
     Route: 040
     Dates: start: 20191213, end: 20191213
  11. VORICONAZOLE. [Suspect]
     Active Substance: VORICONAZOLE
     Indication: ANTIVIRAL PROPHYLAXIS
     Dosage: 1 DF, QD (200 MG)
     Route: 040
     Dates: start: 20191220, end: 20191220
  12. VORICONAZOLE. [Suspect]
     Active Substance: VORICONAZOLE
     Dosage: 2 DF, QD (200 MG)
     Route: 040
     Dates: start: 20191221, end: 20191225

REACTIONS (4)
  - Alanine aminotransferase increased [Recovered/Resolved]
  - Product use in unapproved indication [Unknown]
  - Blood lactate dehydrogenase abnormal [Unknown]
  - Aspartate aminotransferase increased [Recovered/Resolved]

NARRATIVE: CASE EVENT DATE: 20191226
